FAERS Safety Report 11373094 (Version 1)
Quarter: 2015Q3

REPORT INFORMATION
  Report Type: Spontaneous
  Country: US (occurrence: US)
  Receive Date: 20150811
  Receipt Date: 20150811
  Transmission Date: 20151125
  Serious: No
  Sender: FDA-Public Use
  Company Number: US-ELI_LILLY_AND_COMPANY-US201205004789

PATIENT
  Sex: Female

DRUGS (2)
  1. LETAIRIS [Concomitant]
     Active Substance: AMBRISENTAN
     Dosage: 10 MG, UNK
     Route: 048
     Dates: start: 20120502
  2. ADCIRCA [Suspect]
     Active Substance: TADALAFIL
     Dosage: UNK, UNKNOWN

REACTIONS (5)
  - Ear congestion [Unknown]
  - Dizziness [Not Recovered/Not Resolved]
  - Nasal congestion [Unknown]
  - Head discomfort [Unknown]
  - Migraine [Not Recovered/Not Resolved]
